FAERS Safety Report 12672132 (Version 2)
Quarter: 2016Q4

REPORT INFORMATION
  Report Type: Spontaneous
  Country: US (occurrence: US)
  Receive Date: 20160822
  Receipt Date: 20161005
  Transmission Date: 20170207
  Serious: No
  Sender: FDA-Public Use
  Company Number: US-PFIZER INC-2016395749

PATIENT
  Age: 81 Year
  Sex: Female
  Weight: 53.97 kg

DRUGS (2)
  1. METHYLPREDNISOLONE. [Suspect]
     Active Substance: METHYLPREDNISOLONE
     Indication: RHEUMATOID ARTHRITIS
     Dosage: 6 MG, 1X/DAY (ONCE A DAY DAILY, FROM THREE YEARS)
     Route: 048
     Dates: start: 2013
  2. METHYLPREDNISOLONE. [Suspect]
     Active Substance: METHYLPREDNISOLONE
     Dosage: UNK
     Dates: start: 2014

REACTIONS (2)
  - Malaise [Unknown]
  - Skin discomfort [Unknown]
